FAERS Safety Report 5096757-X (Version None)
Quarter: 2006Q3

REPORT INFORMATION
  Report Type: 
  Country: None (occurrence: None)
  Receive Date: 20060831
  Receipt Date: 20060815
  Transmission Date: 20061208
  Serious: Yes (Death)
  Sender: FDA-Public Use
  Company Number: 2006080459

PATIENT
  Age: 75 Year
  Sex: Male
  Weight: 124.7392 kg

DRUGS (1)
  1. CELEBREX [Suspect]
     Indication: ARTHRITIS
     Dosage: 200 MG (200 MG,2 IN 1 D)
     Dates: start: 20041104, end: 20050510

REACTIONS (4)
  - CARDIAC DISORDER [None]
  - CORONARY ARTERY THROMBOSIS [None]
  - MYOCARDIAL INFARCTION [None]
  - SUDDEN DEATH [None]
